FAERS Safety Report 5737349-6 (Version None)
Quarter: 2008Q2

REPORT INFORMATION
  Report Type: 
  Country: None (occurrence: None)
  Receive Date: 20080514
  Receipt Date: 20080227
  Transmission Date: 20081010
  Serious: Yes (Hospitalization)
  Sender: FDA-Public Use
  Company Number: US-BRISTOL-MYERS SQUIBB COMPANY-13992243

PATIENT
  Age: 62 Year
  Sex: Female

DRUGS (8)
  1. IXEMPRA KIT [Suspect]
     Indication: BREAST CANCER METASTATIC
     Route: 042
     Dates: start: 20080103, end: 20080124
  2. BENADRYL [Concomitant]
     Route: 048
     Dates: start: 20080103, end: 20080124
  3. TAGAMET [Concomitant]
     Dates: start: 20080103, end: 20080124
  4. XANAX [Concomitant]
     Dosage: 1 DOSAGE FORM = 25UNIT NOT SPECIFIED.
  5. FOSAMAX [Concomitant]
  6. LIPITOR [Concomitant]
  7. BUMEX [Concomitant]
  8. POTASSIUM CHLORIDE [Concomitant]

REACTIONS (1)
  - FULL BLOOD COUNT DECREASED [None]
